FAERS Safety Report 9008589 (Version 1)
Quarter: 2013Q1

REPORT INFORMATION
  Report Type: Spontaneous
  Country: US (occurrence: US)
  Receive Date: 20130111
  Receipt Date: 20130111
  Transmission Date: 20140127
  Serious: No
  Sender: FDA-Public Use
  Company Number: US-ASTRAZENECA-2013SE01416

PATIENT
  Age: 87 Year
  Sex: Female
  Weight: 56.7 kg

DRUGS (4)
  1. ATACAND [Suspect]
     Indication: EXTRASYSTOLES
     Route: 048
  2. BABY ASPIRIN [Concomitant]
  3. UNSPECIFIED INGREDIENT [Concomitant]
  4. FLUID PILL [Concomitant]

REACTIONS (5)
  - Cardiac disorder [Unknown]
  - Somnolence [Not Recovered/Not Resolved]
  - Body height decreased [Not Recovered/Not Resolved]
  - Thyroid disorder [Unknown]
  - Off label use [Unknown]
